FAERS Safety Report 12307201 (Version 2)
Quarter: 2016Q2

REPORT INFORMATION
  Report Type: Spontaneous
  Country: CA (occurrence: CA)
  Receive Date: 20160426
  Receipt Date: 20160429
  Transmission Date: 20160815
  Serious: Yes (Hospitalization, Disabling, Other)
  Sender: FDA-Public Use
  Company Number: CA-009507513-1604CAN015433

PATIENT
  Sex: Male

DRUGS (1)
  1. JANUVIA [Suspect]
     Active Substance: SITAGLIPTIN PHOSPHATE
     Indication: TYPE 2 DIABETES MELLITUS
     Dosage: UNK, UNKNOWN
     Route: 048
     Dates: start: 2007, end: 201311

REACTIONS (14)
  - Ulcer [Unknown]
  - Pancreatic disorder [Unknown]
  - Large intestinal obstruction [Unknown]
  - Pancreatitis [Unknown]
  - Depression [Unknown]
  - Renal failure [Unknown]
  - Clostridium difficile infection [Unknown]
  - Diabetic coma [Recovered/Resolved]
  - Herpes zoster [Unknown]
  - Pancreatitis acute [Unknown]
  - Stress [Unknown]
  - Distributive shock [Unknown]
  - Nerve injury [Not Recovered/Not Resolved]
  - Pneumonia [Unknown]

NARRATIVE: CASE EVENT DATE: 20131117
